FAERS Safety Report 9122090 (Version 1)
Quarter: 2013Q1

REPORT INFORMATION
  Report Type: Spontaneous
  Country: US (occurrence: None)
  Receive Date: 20130124
  Receipt Date: 20130124
  Transmission Date: 20140127
  Serious: No
  Sender: FDA-Public Use
  Company Number: 2012US-004423

PATIENT
  Age: 46 Year
  Sex: Female
  Weight: 51.5 kg

DRUGS (4)
  1. OMONTYS (PEGINESATIDE) SOLUTION FOR INJECTION [Suspect]
     Indication: NEPHROGENIC ANAEMIA
     Route: 042
     Dates: start: 20120925, end: 20120925
  2. GENTAMICIN (GENTAMICIN) [Concomitant]
  3. LIQUACEL [Concomitant]
  4. VENOFER [Concomitant]

REACTIONS (1)
  - Tremor [None]
